FAERS Safety Report 12246218 (Version 1)
Quarter: 2016Q2

REPORT INFORMATION
  Report Type: Report from Study
  Country: US (occurrence: US)
  Receive Date: 20160407
  Receipt Date: 20160407
  Transmission Date: 20160815
  Serious: Yes (Hospitalization)
  Sender: FDA-Public Use
  Company Number: US-MALLINCKRODT-T201601125

PATIENT
  Sex: Male
  Weight: 150 kg

DRUGS (10)
  1. REPOSITORY CORTICOTROPIN INJECTION [Suspect]
     Active Substance: CORTICOTROPIN
     Indication: RHEUMATOID ARTHRITIS
     Dosage: 1 ML TWICE WEEKLY
     Route: 058
     Dates: start: 201503
  2. REPOSITORY CORTICOTROPIN INJECTION [Suspect]
     Active Substance: CORTICOTROPIN
     Indication: CONNECTIVE TISSUE DISORDER
  3. GABAPENTIN. [Concomitant]
     Active Substance: GABAPENTIN
  4. METHYLPREDNISOLONE. [Concomitant]
     Active Substance: METHYLPREDNISOLONE
     Indication: CONDITION AGGRAVATED
  5. PREDNISONE. [Concomitant]
     Active Substance: PREDNISONE
     Dosage: 5 MG BID
  6. BABY ASPIRIN [Concomitant]
     Active Substance: ASPIRIN
     Dosage: BID
  7. ENDOCIN [Concomitant]
     Dosage: UNK
     Dates: end: 201603
  8. XELJANZ [Concomitant]
     Active Substance: TOFACITINIB CITRATE
  9. METHYLPREDNISOLONE. [Concomitant]
     Active Substance: METHYLPREDNISOLONE
     Indication: BREAKTHROUGH PAIN
  10. CYMBALTA [Concomitant]
     Active Substance: DULOXETINE HYDROCHLORIDE

REACTIONS (9)
  - Electrocardiogram abnormal [Unknown]
  - Sensory disturbance [Unknown]
  - Coronary artery occlusion [Recovered/Resolved]
  - Dyspnoea [Unknown]
  - Cardiac stress test abnormal [Unknown]
  - Myalgia [Recovering/Resolving]
  - Arthralgia [Recovering/Resolving]
  - Echocardiogram abnormal [Unknown]
  - Chest pain [Unknown]

NARRATIVE: CASE EVENT DATE: 2016
